FAERS Safety Report 8059351-4 (Version None)
Quarter: 2012Q1

REPORT INFORMATION
  Report Type: 
  Country: None (occurrence: None)
  Receive Date: 20120120
  Receipt Date: 20120120
  Transmission Date: 20120608
  Serious: Yes (Other)
  Sender: FDA-Public Use
  Company Number: None

PATIENT
  Age: 24 Year
  Sex: Female
  Weight: 86.182 kg

DRUGS (2)
  1. LAMOTRIGINE [Suspect]
     Indication: BIPOLAR II DISORDER
     Dosage: 400MG
     Route: 048
  2. TOPIRAMATE [Concomitant]
     Indication: BIPOLAR II DISORDER
     Dosage: 125MG

REACTIONS (4)
  - NEOPLASM MALIGNANT [None]
  - FATIGUE [None]
  - GLAUCOMA [None]
  - VISUAL IMPAIRMENT [None]
